FAERS Safety Report 5729826-9 (Version None)
Quarter: 2008Q2

REPORT INFORMATION
  Report Type: 
  Country: None (occurrence: None)
  Receive Date: 20080501
  Receipt Date: 20080421
  Transmission Date: 20081010
  Serious: Yes (Death, Life-Threatening)
  Sender: FDA-Public Use
  Company Number: 000726

PATIENT
  Age: 57 Year
  Sex: Male

DRUGS (6)
  1. BUSULFEX [Suspect]
     Indication: STEM CELL TRANSPLANT
     Dosage: INTRAVENOUS
     Route: 042
     Dates: start: 20070922, end: 20070923
  2. FLUDARABINE PHOSPHATE [Concomitant]
  3. PHENYTOIN [Concomitant]
  4. NARTOGRASTIM (NARTOGRASTIM) [Concomitant]
  5. METHOTREXATE [Concomitant]
  6. CYCLOSPORINE [Concomitant]

REACTIONS (13)
  - ATRIAL FIBRILLATION [None]
  - DIARRHOEA [None]
  - HYPOALBUMINAEMIA [None]
  - JAUNDICE [None]
  - LIVER FUNCTION TEST ABNORMAL [None]
  - PNEUMONIA [None]
  - RENAL IMPAIRMENT [None]
  - SHOCK [None]
  - STAPHYLOCOCCAL SEPSIS [None]
  - STENOTROPHOMONAS SEPSIS [None]
  - STOMATITIS [None]
  - SUPRAVENTRICULAR TACHYCARDIA [None]
  - VENTRICULAR EXTRASYSTOLES [None]
